FAERS Safety Report 4944958-0 (Version None)
Quarter: 2006Q1

REPORT INFORMATION
  Report Type: 
  Country: None (occurrence: None)
  Receive Date: 20060117
  Receipt Date: 20050607
  Transmission Date: 20060701
  Serious: Yes (Other)
  Sender: FDA-Public Use
  Company Number: A03200501714

PATIENT
  Age: 79 Year
  Sex: Female

DRUGS (3)
  1. PLAVIX [Suspect]
     Indication: SURGERY
     Dosage: 75 MG QD - ORAL
     Route: 048
     Dates: start: 19990101, end: 20050201
  2. NADOLOL [Concomitant]
  3. TRIAMTERENE W/ HYDROCHLOROTHIAZIDE [Concomitant]

REACTIONS (1)
  - CEREBROVASCULAR ACCIDENT [None]
